FAERS Safety Report 4574438-6 (Version None)
Quarter: 2005Q1

REPORT INFORMATION
  Report Type: 
  Country: None (occurrence: None)
  Receive Date: 20050208
  Receipt Date: 20001110
  Transmission Date: 20050727
  Serious: No
  Sender: FDA-Public Use
  Company Number: US-GLAXOSMITHKLINE-A0338275A

PATIENT
  Age: 49 Year
  Sex: Male
  Weight: 83.9 kg

DRUGS (4)
  1. PAXIL [Suspect]
     Dosage: 40MG PER DAY
     Route: 048
     Dates: start: 20000901
  2. SYNTHROID [Concomitant]
  3. INDERAL [Concomitant]
  4. TRIAZOLAM [Concomitant]
     Indication: DRUG USE FOR UNKNOWN INDICATION
     Dosage: .25MG AT NIGHT
     Route: 048

REACTIONS (6)
  - DISORIENTATION [None]
  - DIZZINESS [None]
  - ERECTILE DYSFUNCTION [None]
  - INSOMNIA [None]
  - PARAESTHESIA [None]
  - WEIGHT DECREASED [None]
